FAERS Safety Report 7231533-0 (Version None)
Quarter: 2011Q1

REPORT INFORMATION
  Report Type: 
  Country: None (occurrence: None)
  Receive Date: 20110118
  Receipt Date: 20110110
  Transmission Date: 20110831
  Serious: Yes (Hospitalization)
  Sender: FDA-Public Use
  Company Number: CA-JNJFOC-20110103286

PATIENT
  Sex: Male
  Weight: 122.1 kg

DRUGS (1)
  1. REMICADE [Suspect]
     Indication: COLITIS ULCERATIVE
     Dosage: A TOTAL OF 3 INFUSIONS
     Route: 042

REACTIONS (9)
  - HEART RATE IRREGULAR [None]
  - HYPOTENSION [None]
  - CONFUSIONAL STATE [None]
  - EYE MOVEMENT DISORDER [None]
  - HYPERHIDROSIS [None]
  - UNRESPONSIVE TO STIMULI [None]
  - PALLOR [None]
  - GASTROINTESTINAL SOUNDS ABNORMAL [None]
  - BRADYCARDIA [None]
